FAERS Safety Report 17599651 (Version 18)
Quarter: 2020Q3

REPORT INFORMATION
  Report Type: Spontaneous
  Country: DE (occurrence: DE)
  Receive Date: 20200330
  Receipt Date: 20200928
  Transmission Date: 20201102
  Serious: Yes (Life-Threatening, Hospitalization, Other)
  Sender: FDA-Public Use
  Company Number: DE-BRISTOL-MYERS SQUIBB COMPANY-BMS-2020-025402

PATIENT
  Age: 69 Year
  Sex: Male
  Weight: 77 kg

DRUGS (23)
  1. MILGAMMA PROTEKT [Interacting]
     Active Substance: BENFOTIAMINE
     Indication: CEREBROVASCULAR ACCIDENT PROPHYLAXIS
  2. SIMVASTATIN. [Interacting]
     Active Substance: SIMVASTATIN
     Indication: HYPERTENSION
     Dosage: 40 MILLIGRAM, QD (AT NIGHT)
     Route: 048
     Dates: start: 201808
  3. PROCORALAN [Interacting]
     Active Substance: IVABRADINE
     Indication: CARDIAC DISORDER
     Dosage: 7.5 MILLIGRAM, DAILY
     Route: 065
     Dates: start: 201808
  4. AMLODIPINE [Interacting]
     Active Substance: AMLODIPINE BESYLATE
     Indication: HYPERTENSION
     Dosage: 5 MILLIGRAM, BID
     Route: 065
     Dates: start: 201808
  5. RAMIPRIL. [Interacting]
     Active Substance: RAMIPRIL
     Indication: HYPERTENSION
     Dosage: 10 MILLIGRAM, QD
     Route: 065
     Dates: start: 201808
  6. SIMVASTATIN. [Interacting]
     Active Substance: SIMVASTATIN
     Indication: BLOOD CHOLESTEROL
     Dosage: 50 MILLIGRAM, QD
     Route: 048
     Dates: start: 20110506
  7. SIMVASTATIN. [Interacting]
     Active Substance: SIMVASTATIN
     Dosage: 100 MILLIGRAM, DAILY
     Route: 065
     Dates: start: 201808
  8. CARVEDILOL. [Interacting]
     Active Substance: CARVEDILOL
     Indication: CARDIAC DISORDER
     Dosage: 25 MILLIGRAM, Q12H
     Route: 065
     Dates: start: 201808
  9. SIMVASTATIN. [Interacting]
     Active Substance: SIMVASTATIN
     Indication: CORONARY ARTERY DISEASE
     Dosage: 50 MILLIGRAM, QD (MORNING)
     Route: 065
     Dates: start: 201808
  10. AVASTIN [ATORVASTATIN CALCIUM] [Interacting]
     Active Substance: ATORVASTATIN CALCIUM
     Indication: DIABETIC RETINAL OEDEMA
     Dosage: 1 DOSAGE FORM (INJECT IN THE RIGHT EYE AT 13.30)
     Route: 031
     Dates: start: 20200115
  11. ELIQUIS [Suspect]
     Active Substance: APIXABAN
     Indication: CEREBROVASCULAR ACCIDENT PROPHYLAXIS
     Dosage: 5 MILLIGRAM, BID
     Route: 065
     Dates: start: 201808
  12. JANUMET [Interacting]
     Active Substance: METFORMIN HYDROCHLORIDE\SITAGLIPTIN PHOSPHATE
     Indication: DIABETES MELLITUS
     Dosage: 1 DOSAGE FORM, DAILY(50/1000 MILLIGRAM)
     Route: 065
     Dates: start: 201808
  13. AVASTIN [Interacting]
     Active Substance: BEVACIZUMAB
     Indication: DIABETIC RETINAL OEDEMA
     Dosage: INJECT IN THE RIGHT EYE AT 13.30
     Route: 031
     Dates: start: 20200115
  14. SIMVASTATIN. [Interacting]
     Active Substance: SIMVASTATIN
     Indication: DIABETES MELLITUS
     Dosage: 10 MILLIGRAM, QD (MORNING)
     Route: 065
     Dates: start: 201808
  15. ABASAGLAR [Interacting]
     Active Substance: INSULIN GLARGINE
     Indication: DIABETES MELLITUS
     Dosage: 15 INTERNATIONAL UNIT, QD
     Route: 065
     Dates: start: 201808
  16. SPIRONOLACTON [Interacting]
     Active Substance: SPIRONOLACTONE
     Indication: CORONARY ARTERY DISEASE
     Dosage: 50 MILLIGRAM, QD
     Route: 048
     Dates: start: 20110506
  17. SIMVASTATIN. [Interacting]
     Active Substance: SIMVASTATIN
     Dosage: 40 MILLIGRAM, QD
     Route: 048
     Dates: start: 20110506
  18. ALLOPURINOL. [Suspect]
     Active Substance: ALLOPURINOL
     Indication: GOUT
     Dosage: 100 MILLIGRAM, QD
     Route: 065
     Dates: start: 201808
  19. LEVETIRACETAM. [Concomitant]
     Active Substance: LEVETIRACETAM
     Indication: PRODUCT USED FOR UNKNOWN INDICATION
     Dosage: 1 DOSAGE FORM, BID
     Route: 065
  20. MILGAMMA PROTEKT [Interacting]
     Active Substance: BENFOTIAMINE
     Indication: CARDIOVASCULAR DISORDER
     Dosage: 300 MILLIGRAM, QD
     Route: 065
     Dates: start: 201808
  21. SPIRONOLACTON [Interacting]
     Active Substance: SPIRONOLACTONE
     Indication: CARDIAC DISORDER
     Dosage: 50 MILLIGRAM, QD (MORNING)
     Route: 048
     Dates: start: 201808
  22. SIMVASTATIN. [Interacting]
     Active Substance: SIMVASTATIN
     Indication: GOUT
     Dosage: 15 INTERNATIONAL UNIT, DAILY
     Route: 065
     Dates: start: 201808
  23. TORASEMID [Suspect]
     Active Substance: TORSEMIDE
     Indication: RENAL DISORDER
     Dosage: 10 MILLIGRAM, QD (MORNING)
     Route: 065
     Dates: start: 201808

REACTIONS (7)
  - Oculogyric crisis [Recovered/Resolved]
  - Seizure [Recovered/Resolved]
  - Eye movement disorder [Recovered/Resolved]
  - Drug interaction [Recovered/Resolved]
  - Status epilepticus [Recovering/Resolving]
  - Movement disorder [Recovered/Resolved]
  - Muscle spasms [Recovered/Resolved]

NARRATIVE: CASE EVENT DATE: 2020
